FAERS Safety Report 9856899 (Version 1)
Quarter: 2014Q1

REPORT INFORMATION
  Report Type: Spontaneous
  Country: US (occurrence: US)
  Receive Date: 20140130
  Receipt Date: 20140130
  Transmission Date: 20141002
  Serious: Yes (Hospitalization)
  Sender: FDA-Public Use
  Company Number: US-GLAXOSMITHKLINE-A1058773A

PATIENT
  Sex: Female

DRUGS (2)
  1. BENLYSTA [Suspect]
     Indication: SYSTEMIC LUPUS ERYTHEMATOSUS
     Route: 042
     Dates: start: 2004
  2. UNSPECIFIED MEDICATION [Concomitant]

REACTIONS (3)
  - Clostridium difficile infection [Not Recovered/Not Resolved]
  - Megacolon [Not Recovered/Not Resolved]
  - Colon operation [Not Recovered/Not Resolved]
